FAERS Safety Report 7621097-1 (Version None)
Quarter: 2011Q3

REPORT INFORMATION
  Report Type: 
  Country: None (occurrence: None)
  Receive Date: 20110719
  Receipt Date: 20110429
  Transmission Date: 20111222
  Serious: No
  Sender: FDA-Public Use
  Company Number: US-KINGPHARMUSA00001-K201100526

PATIENT
  Sex: Female
  Weight: 74.83 kg

DRUGS (1)
  1. LEVOXYL [Suspect]
     Indication: THYROIDECTOMY
     Dosage: 125 MCG, QD
     Route: 048

REACTIONS (1)
  - PRURITUS [None]
